FAERS Safety Report 7897029-8 (Version None)
Quarter: 2011Q4

REPORT INFORMATION
  Report Type: 
  Country: None (occurrence: None)
  Receive Date: 20111107
  Receipt Date: 20111102
  Transmission Date: 20120403
  Serious: No
  Sender: FDA-Public Use
  Company Number: US-PFIZER INC-2011268794

PATIENT
  Sex: Male
  Weight: 66.213 kg

DRUGS (4)
  1. SUTENT [Suspect]
     Indication: PANCREATIC NEUROENDOCRINE TUMOUR
     Dosage: 37.5 MG, 1X/DAY
     Dates: start: 20110901, end: 20111027
  2. LOVENOX [Concomitant]
     Indication: PROPHYLAXIS
     Dosage: 60 MG, 1X/DAY
  3. FLECAINIDE [Concomitant]
     Indication: ARRHYTHMIA
     Dosage: 100 MG, 1X/DAY
  4. METOPROLOL [Concomitant]
     Indication: ARRHYTHMIA
     Dosage: 50 MG, 1X/DAY

REACTIONS (1)
  - PLATELET COUNT DECREASED [None]
